FAERS Safety Report 20750875 (Version 1)
Quarter: 2022Q2

REPORT INFORMATION
  Report Type: Spontaneous
  Country: US (occurrence: None)
  Receive Date: 20220426
  Receipt Date: 20220426
  Transmission Date: 20220720
  Serious: Yes (Hospitalization)
  Sender: FDA-Public Use
  Company Number: None

PATIENT
  Age: 68 Year
  Sex: Female
  Weight: 67.5 kg

DRUGS (19)
  1. DEFIBROTIDE [Suspect]
     Active Substance: DEFIBROTIDE (BOVINE)
     Indication: Venoocclusive liver disease
     Dosage: OTHER FREQUENCY : Q6H;?
     Route: 041
     Dates: start: 20220325, end: 20220407
  2. bumetanide 1 mg PO daily [Concomitant]
  3. enoxaparin 40 mg SQ daily [Concomitant]
  4. escitalopram 10 mg PO daily [Concomitant]
  5. folic acid 1 mg PO BID [Concomitant]
  6. gabapentin 300 mg PO daily [Concomitant]
  7. isavuconazonium sulfate 372 mg PO daily [Concomitant]
  8. loratadine 10 mg PO daily [Concomitant]
  9. mirtazapine 15 mg PO QHS [Concomitant]
  10. multivitamin 1 Tablet PO daily [Concomitant]
  11. ondansetron 8 mg PO Q8H PRN [Concomitant]
  12. pantoprazole 40 mg PO daily [Concomitant]
  13. prochlorperazine 10 mg PO Q8H PRN [Concomitant]
  14. BACTRIM DS 800-160 MG PO 3 times weekly [Concomitant]
  15. tacrolimus 1 mg PO daily [Concomitant]
  16. trazodone 100 mg PO QHS [Concomitant]
  17. ursodiol 300 mg PO TID [Concomitant]
  18. valacyclovir 500 mg PO daily [Concomitant]
  19. montelukast  10 mg PO daily [Concomitant]

REACTIONS (10)
  - Malnutrition [None]
  - Graft versus host disease [None]
  - Diarrhoea [None]
  - Nausea [None]
  - Vomiting [None]
  - Hypophagia [None]
  - Blood creatinine abnormal [None]
  - Cough [None]
  - Urine output increased [None]
  - Adverse drug reaction [None]

NARRATIVE: CASE EVENT DATE: 20220425
